FAERS Safety Report 5023227-7 (Version None)
Quarter: 2006Q2

REPORT INFORMATION
  Report Type: 
  Country: None (occurrence: None)
  Receive Date: 20060428
  Receipt Date: 20060112
  Transmission Date: 20061013
  Serious: No
  Sender: FDA-Public Use
  Company Number: 012088

PATIENT
  Age: 66 Year
  Sex: Male

DRUGS (8)
  1. PRIALT [Suspect]
     Indication: PAIN
     Dosage: ONCE/HOUR, INTRATHECAL
     Route: 037
     Dates: start: 20060104
  2. MORPHINE [Suspect]
     Indication: DRUG USE FOR UNKNOWN INDICATION
     Dosage: ONCE/HOUR, INTRATHECAL
     Route: 037
     Dates: end: 20060103
  3. FLEXERIL [Concomitant]
  4. KLONOPIN [Concomitant]
  5. PAXIL [Concomitant]
  6. VICODIN [Concomitant]
  7. TYLENOL PM (DIPHENHYDRAMINE, PARACETAMOL) [Concomitant]
  8. NORCO [Concomitant]

REACTIONS (7)
  - CONFUSIONAL STATE [None]
  - DRUG WITHDRAWAL SYNDROME [None]
  - HYPERHIDROSIS [None]
  - IRRITABILITY [None]
  - MOOD SWINGS [None]
  - NAUSEA [None]
  - PRURITUS [None]
